FAERS Safety Report 19710768 (Version 1)
Quarter: 2021Q3

REPORT INFORMATION
  Report Type: Spontaneous
  Country: US (occurrence: US)
  Receive Date: 20210817
  Receipt Date: 20210817
  Transmission Date: 20211014
  Serious: Yes (Hospitalization)
  Sender: FDA-Public Use
  Company Number: US-LUPIN PHARMACEUTICALS INC.-2021-15044

PATIENT
  Age: 49 Year
  Sex: Male

DRUGS (12)
  1. HYDROMORPHONE [Suspect]
     Active Substance: HYDROMORPHONE
     Indication: PAIN
     Dosage: UNK
     Route: 042
  2. HYDROMORPHONE [Suspect]
     Active Substance: HYDROMORPHONE
     Dosage: UNK, DOSE INCREASED
     Route: 042
  3. CARBOPLATIN. [Concomitant]
     Active Substance: CARBOPLATIN
     Indication: NASAL SINUS CANCER
     Dosage: UNK
     Route: 065
  4. SALINE [Suspect]
     Active Substance: SODIUM CHLORIDE
     Indication: MUCOSAL INFLAMMATION
     Dosage: UNK,RINSE
     Route: 065
  5. KETAMINE [Suspect]
     Active Substance: KETAMINE
     Dosage: 20 MILLIGRAM, 6 HOURS
     Route: 045
  6. CISPLATIN. [Concomitant]
     Active Substance: CISPLATIN
     Indication: NASAL SINUS CANCER
     Dosage: UNK
     Route: 065
  7. OXYCODONE [Suspect]
     Active Substance: OXYCODONE
     Indication: OROPHARYNGEAL PAIN
     Dosage: UNK,APPROXIMATELY 45MG MORPHINE EQUIVALENT DAILY DOSE
     Route: 065
  8. KETAMINE [Suspect]
     Active Substance: KETAMINE
     Indication: PAIN
     Dosage: UNK,RINSE
     Route: 048
  9. PURE BAKING SODA [Suspect]
     Active Substance: SODIUM BICARBONATE
     Indication: MUCOSAL INFLAMMATION
     Dosage: UNK
     Route: 065
  10. BIOTENE NOS [Suspect]
     Active Substance: CETYLPYRIDINIUM CHLORIDE OR SODIUM FLUORIDE OR SODIUM MONOFLUOROPHOSPHATE OR GLUCOSE OXIDASE\LACTOFERRIN\LACTOPEROXIDASE BOVINE\LYSOZYME
     Indication: MUCOSAL INFLAMMATION
     Dosage: UNK
     Route: 048
  11. DEXAMETHASONE. [Suspect]
     Active Substance: DEXAMETHASONE
     Indication: PAIN
     Dosage: UNK
     Route: 042
  12. ETOPOSIDE. [Concomitant]
     Active Substance: ETOPOSIDE
     Indication: NASAL SINUS CANCER
     Dosage: UNK
     Route: 065

REACTIONS (2)
  - Drug ineffective [Unknown]
  - Somnolence [Unknown]
